FAERS Safety Report 19458405 (Version 1)
Quarter: 2021Q2

REPORT INFORMATION
  Report Type: Report from Study
  Country: PL (occurrence: PL)
  Receive Date: 20210624
  Receipt Date: 20210624
  Transmission Date: 20210717
  Serious: Yes (Hospitalization)
  Sender: FDA-Public Use
  Company Number: PL-ROCHE-2849983

PATIENT
  Age: 74 Year
  Sex: Male
  Weight: 80 kg

DRUGS (17)
  1. CABOZANTINIB [Suspect]
     Active Substance: CABOZANTINIB
     Indication: RENAL CELL CARCINOMA
     Route: 048
     Dates: start: 20201216
  2. CARDURA XL [Concomitant]
     Active Substance: DOXAZOSIN MESYLATE
     Indication: CORONARY ARTERY DISEASE
     Route: 048
     Dates: start: 2010
  3. ATORVAGEN [Concomitant]
     Route: 048
     Dates: start: 2015
  4. TORAMIDE [Concomitant]
     Route: 048
     Dates: start: 2015
  5. NEBILET [Concomitant]
     Active Substance: NEBIVOLOL
     Indication: CORONARY ARTERY DISEASE
     Route: 048
     Dates: start: 2010
  6. ATEZOLIZUMAB. [Suspect]
     Active Substance: ATEZOLIZUMAB
     Indication: RENAL CELL CARCINOMA
     Route: 042
     Dates: start: 20201216
  7. LAPIXEN [Concomitant]
     Indication: CORONARY ARTERY DISEASE
     Route: 048
     Dates: start: 2010
  8. CONTOUR TS [Concomitant]
     Indication: DIABETES MELLITUS
     Route: 048
     Dates: start: 2015
  9. SPIRIVA [Concomitant]
     Active Substance: TIOTROPIUM BROMIDE MONOHYDRATE
     Route: 045
     Dates: start: 2012
  10. FLUTIXON [Concomitant]
     Dosage: DOSE; 250 UG
     Route: 045
     Dates: start: 2012
  11. GENSULIN N [Concomitant]
     Indication: DIABETES MELLITUS
     Route: 048
     Dates: start: 2015
  12. EMANERA [Concomitant]
     Active Substance: ESOMEPRAZOLE MAGNESIUM
     Route: 048
     Dates: start: 2015
  13. ZAFIRON [Concomitant]
     Dosage: AEROSOL?DOSE:12 UG
     Route: 045
     Dates: start: 2012
  14. ACC OPTIMA [Concomitant]
     Dosage: DOSE: 100 UG
     Route: 045
     Dates: start: 2012
  15. SIRDALUD [Concomitant]
     Active Substance: TIZANIDINE
     Route: 048
     Dates: start: 2016
  16. VENTOLIN [Concomitant]
     Active Substance: ALBUTEROL SULFATE
     Route: 045
     Dates: start: 2012
  17. CARZAP [Concomitant]
     Route: 048
     Dates: start: 2015

REACTIONS (2)
  - General physical health deterioration [Recovering/Resolving]
  - Disease progression [Recovering/Resolving]

NARRATIVE: CASE EVENT DATE: 20210610
